FAERS Safety Report 10215766 (Version 1)
Quarter: 2014Q2

REPORT INFORMATION
  Report Type: Spontaneous
  Country: NL (occurrence: None)
  Receive Date: 20140527
  Receipt Date: 20140527
  Transmission Date: 20141212
  Serious: Yes (Other)
  Sender: FDA-Public Use
  Company Number: GAM-146-14-NL

PATIENT
  Age: 13 Year
  Sex: Male

DRUGS (2)
  1. OCTAGAM [Suspect]
     Dosage: 15 G (1X 1/D), INTRAVENOUS (NOT OTHERWISE SPECIFIED)?
     Route: 042
     Dates: start: 20140204, end: 20140204
  2. INSULIN [Concomitant]

REACTIONS (6)
  - Dizziness [None]
  - Blood glucose false positive [None]
  - Fatigue [None]
  - Nausea [None]
  - Hypoglycaemia [None]
  - Laboratory test interference [None]
